FAERS Safety Report 5252302-7 (Version None)
Quarter: 2007Q1

REPORT INFORMATION
  Report Type: 
  Country: None (occurrence: None)
  Receive Date: 20070301
  Receipt Date: 20060215
  Transmission Date: 20070707
  Serious: Yes (Other)
  Sender: FDA-Public Use
  Company Number: US-BRISTOL-MYERS SQUIBB COMPANY-13284724

PATIENT
  Age: 32 Year
  Sex: Female
  Weight: 66 kg

DRUGS (8)
  1. TAXOL [Suspect]
     Indication: BREAST CANCER
     Route: 042
  2. NEUPOGEN [Concomitant]
     Route: 058
  3. DOXORUBICIN HCL [Concomitant]
  4. CYCLOPHOSPHAMIDE [Concomitant]
  5. ZOFRAN [Concomitant]
     Indication: PREMEDICATION
  6. DECADRON [Concomitant]
     Indication: PREMEDICATION
  7. PEPCID [Concomitant]
     Indication: PREMEDICATION
  8. BENADRYL [Concomitant]
     Indication: PREMEDICATION

REACTIONS (3)
  - DIZZINESS [None]
  - HYPOTENSION [None]
  - PALPITATIONS [None]
